FAERS Safety Report 7387714-9 (Version None)
Quarter: 2011Q1

REPORT INFORMATION
  Report Type: 
  Country: None (occurrence: None)
  Receive Date: 20110331
  Receipt Date: 20110323
  Transmission Date: 20110831
  Serious: Yes (Death)
  Sender: FDA-Public Use
  Company Number: IT-GENZYME-CLOF-1001524

PATIENT

DRUGS (3)
  1. EVOLTRA [Suspect]
     Indication: ACUTE LEUKAEMIA
     Dosage: 40 MG/M2, QD
     Route: 042
  2. ETOPOSIDE [Suspect]
     Indication: ACUTE LEUKAEMIA
     Dosage: 100 MG/M2, QD
     Route: 065
  3. CYCLOPHOSPHAMIDE [Suspect]
     Indication: ACUTE LEUKAEMIA
     Dosage: 440 MG/M2, QD
     Route: 065

REACTIONS (1)
  - VENOOCCLUSIVE DISEASE [None]
